FAERS Safety Report 23958961 (Version 1)
Quarter: 2024Q2

REPORT INFORMATION
  Report Type: Spontaneous
  Country: US (occurrence: US)
  Receive Date: 20240611
  Receipt Date: 20240611
  Transmission Date: 20240716
  Serious: No
  Sender: FDA-Public Use
  Company Number: US-SA-SAC20240607000666

PATIENT
  Sex: Male

DRUGS (3)
  1. DUPIXENT [Suspect]
     Active Substance: DUPILUMAB
     Indication: Dermatitis atopic
     Dosage: 300 MG, QOW
     Route: 058
  2. DEPAKOTE [Concomitant]
     Active Substance: DIVALPROEX SODIUM
     Dosage: 250 MG, BID, DEPAKOTE WAS CHANGED TO ER 250MG TWO TIMES A DAY.
  3. AMANTADINE [Concomitant]
     Active Substance: AMANTADINE
     Dosage: UNK

REACTIONS (1)
  - Extrapyramidal disorder [Unknown]
